FAERS Safety Report 15659042 (Version 5)
Quarter: 2019Q1

REPORT INFORMATION
  Report Type: Spontaneous
  Country: JP (occurrence: JP)
  Receive Date: 20181127
  Receipt Date: 20190328
  Transmission Date: 20190417
  Serious: Yes (Death, Hospitalization, Other)
  Sender: FDA-Public Use
  Company Number: JP-SAKK-2018SA316053AA

PATIENT
  Age: 74 Year
  Sex: Male

DRUGS (1)
  1. JEVTANA [Suspect]
     Active Substance: CABAZITAXEL
     Indication: PRODUCT USED FOR UNKNOWN INDICATION
     Dosage: DAILY DOSE: INITIALLY 25 MG AND GRADUALLY DECREASED TO 17.5 MG AT THE 4TH CYCLE
     Route: 041

REACTIONS (1)
  - Tuberculosis [Fatal]

NARRATIVE: CASE EVENT DATE: 201811
